FAERS Safety Report 9838988 (Version 2)
Quarter: 2014Q3

REPORT INFORMATION
  Report Type: Spontaneous
  Country: US (occurrence: US)
  Receive Date: 20140123
  Receipt Date: 20140729
  Transmission Date: 20150326
  Serious: Yes (Hospitalization, Other)
  Sender: FDA-Public Use
  Company Number: US-009507513-1401USA010260

PATIENT
  Sex: Female

DRUGS (1)
  1. NUVARING [Suspect]
     Active Substance: ETHINYL ESTRADIOL\ETONOGESTREL
     Indication: CONTRACEPTION
     Dosage: 0.12-0.015 MG/24HR INSERT DAY 5 OF CYCLE, REMOVE AFTER 3 WEEKS, NEW RING 1 WEEK LATER
     Route: 067
     Dates: start: 20110711, end: 20120125

REACTIONS (14)
  - Hilar lymphadenopathy [Unknown]
  - Polycystic ovaries [Unknown]
  - Hiatus hernia [Unknown]
  - Treatment noncompliance [Unknown]
  - Deep vein thrombosis [Unknown]
  - Breast mass [Unknown]
  - Pulmonary granuloma [Unknown]
  - Pleural effusion [Unknown]
  - Pain in extremity [Unknown]
  - Pneumonia [Unknown]
  - Pulmonary embolism [Recovering/Resolving]
  - Atelectasis [Unknown]
  - Pulmonary mass [Unknown]
  - Electrocardiogram T wave abnormal [Unknown]

NARRATIVE: CASE EVENT DATE: 20110826
